FAERS Safety Report 7027503-8 (Version None)
Quarter: 2010Q4

REPORT INFORMATION
  Report Type: 
  Country: None (occurrence: None)
  Receive Date: 20101004
  Receipt Date: 20100615
  Transmission Date: 20110411
  Serious: Yes (Other)
  Sender: FDA-Public Use
  Company Number: PHHY2010FR40112

PATIENT
  Age: 40 Year
  Sex: Male

DRUGS (3)
  1. RASILEZ HCT [Suspect]
     Dosage: 300 MG, UNK
  2. ZOVIRAX [Concomitant]
     Indication: HERPES OPHTHALMIC
     Route: 047
  3. BEPANTHEN [Concomitant]
     Indication: HERPES OPHTHALMIC

REACTIONS (2)
  - BLOOD TRIGLYCERIDES INCREASED [None]
  - GAMMA-GLUTAMYLTRANSFERASE INCREASED [None]
